FAERS Safety Report 5074673-7 (Version None)
Quarter: 2006Q3

REPORT INFORMATION
  Report Type: 
  Country: None (occurrence: None)
  Receive Date: 20060803
  Receipt Date: 20060726
  Transmission Date: 20061208
  Serious: Yes (Other)
  Sender: FDA-Public Use
  Company Number: 2006092349

PATIENT
  Age: 58 Year
  Sex: Female
  Weight: 75.7507 kg

DRUGS (2)
  1. LIPITOR [Suspect]
     Indication: HYPERLIPIDAEMIA
     Dosage: 20 MG (20 MG, 1 IN 1 D) ORAL
     Route: 048
     Dates: end: 20060428
  2. CLONAZEPAM [Suspect]
     Indication: DELUSION
     Dosage: 100 MG (2 IN 1 D) ORAL
     Route: 048
     Dates: end: 20060428

REACTIONS (2)
  - HEPATIC INFILTRATION EOSINOPHILIC [None]
  - LIVER FUNCTION TEST ABNORMAL [None]
